FAERS Safety Report 7732140-3 (Version None)
Quarter: 2011Q3

REPORT INFORMATION
  Report Type: 
  Country: None (occurrence: None)
  Receive Date: 20110906
  Receipt Date: 20110811
  Transmission Date: 20111222
  Serious: No
  Sender: FDA-Public Use
  Company Number: US-AMGEN-USASP2011041160

PATIENT

DRUGS (3)
  1. CALCIUM CARBONATE [Concomitant]
     Dosage: UNK
  2. PROLIA [Suspect]
     Indication: PRODUCT USED FOR UNKNOWN INDICATION
     Dosage: UNK
  3. VITAMIN D                          /00318501/ [Concomitant]
     Dosage: UNK

REACTIONS (1)
  - VERTIGO [None]
